FAERS Safety Report 6886431-9 (Version None)
Quarter: 2010Q3

REPORT INFORMATION
  Report Type: 
  Country: None (occurrence: None)
  Receive Date: 20100729
  Receipt Date: 20090706
  Transmission Date: 20110219
  Serious: No
  Sender: FDA-Public Use
  Company Number: US-PFIZER INC-2009206957

PATIENT
  Sex: Male
  Weight: 90.7 kg

DRUGS (4)
  1. CELEBREX [Suspect]
     Indication: BACK PAIN
     Dosage: 200 MG, 1X/DAY
  2. CELEBREX [Interacting]
     Indication: INTERVERTEBRAL DISC DEGENERATION
  3. FLAXSEED OIL [Interacting]
     Indication: BLOOD CHOLESTEROL INCREASED
     Dosage: UNK
     Dates: start: 20090401, end: 20090430
  4. VYTORIN [Concomitant]

REACTIONS (3)
  - DRUG INEFFECTIVE [None]
  - DRUG INTERACTION [None]
  - MALABSORPTION [None]
